FAERS Safety Report 8782331 (Version 1)
Quarter: 2012Q4

REPORT INFORMATION
  Report Type: 
  Country: US (occurrence: US)
  Receive Date: 20120913
  Receipt Date: 20120913
  Transmission Date: 20130627
  Serious: No
  Sender: FDA-Public Use
  Company Number: US-ASTRAZENECA-2012SE65814

PATIENT
  Age: 55 Year
  Sex: Male

DRUGS (3)
  1. LISINOPRIL [Suspect]
     Route: 048
     Dates: start: 2008, end: 2010
  2. CARDURA [Suspect]
     Route: 065
     Dates: start: 2003
  3. NORVASC [Suspect]
     Route: 065
     Dates: start: 2010, end: 2011

REACTIONS (1)
  - Blood pressure inadequately controlled [Unknown]
